FAERS Safety Report 14380861 (Version 1)
Quarter: 2018Q1

REPORT INFORMATION
  Report Type: Spontaneous
  Country: US (occurrence: US)
  Receive Date: 20180112
  Receipt Date: 20180112
  Transmission Date: 20180509
  Serious: Yes (Hospitalization)
  Sender: FDA-Public Use
  Company Number: US-OTSUKA-2017_028807

PATIENT
  Sex: Male
  Weight: 68.03 kg

DRUGS (1)
  1. ABILIFY [Suspect]
     Active Substance: ARIPIPRAZOLE
     Indication: SCHIZOPHRENIA
     Dosage: 5 MG, QD
     Route: 048
     Dates: end: 2017

REACTIONS (6)
  - Psychotic disorder [Unknown]
  - Paranoia [Unknown]
  - Agitation [Unknown]
  - Intentional self-injury [Unknown]
  - Aggression [Unknown]
  - Refusal of treatment by patient [Unknown]

NARRATIVE: CASE EVENT DATE: 2017
